FAERS Safety Report 7430179-9 (Version None)
Quarter: 2011Q2

REPORT INFORMATION
  Report Type: 
  Country: None (occurrence: None)
  Receive Date: 20110421
  Receipt Date: 20100806
  Transmission Date: 20111010
  Serious: No
  Sender: FDA-Public Use
  Company Number: US-ASTRAZENECA-2010SE29352

PATIENT
  Sex: Female

DRUGS (2)
  1. CRESTOR [Suspect]
     Route: 048
  2. TOPROL-XL [Suspect]
     Route: 048

REACTIONS (4)
  - BACTERIAL INFECTION [None]
  - HAEMATOCHEZIA [None]
  - FUNGAL INFECTION [None]
  - CELLULITIS [None]
